FAERS Safety Report 19786305 (Version 1)
Quarter: 2021Q3

REPORT INFORMATION
  Report Type: Other
  Country: CA (occurrence: CA)
  Receive Date: 20210903
  Receipt Date: 20210903
  Transmission Date: 20211014
  Serious: Yes (Other)
  Sender: FDA-Public Use
  Company Number: CA-NAVINTA LLC-000191

PATIENT
  Sex: Female

DRUGS (4)
  1. INDOMETHACIN. [Suspect]
     Active Substance: INDOMETHACIN
     Indication: FOETAL CARDIAC DISORDER
     Dosage: 75 MG/DAY AT 33+5 WEEKS OF GESTATION.
     Route: 048
  2. INDOMETHACIN. [Suspect]
     Active Substance: INDOMETHACIN
     Indication: FOETAL CARDIAC DISORDER
     Dosage: 100 MG/DAY AT 34+6 WEEKS OF GESTATION AS MAINTENANCE DOSE.
     Route: 048
  3. INDOMETHACIN. [Suspect]
     Active Substance: INDOMETHACIN
     Indication: FOETAL CARDIAC DISORDER
     Dosage: 50 MG/DAY AT 34+6 WEEKS OF GESTATION.
     Route: 048
  4. INDOMETHACIN. [Suspect]
     Active Substance: INDOMETHACIN
     Indication: FOETAL CARDIAC DISORDER
     Dosage: SINGLE LOADING RECTAL DOSE OF 100 MG AT 34+6 WEEKS OF GESTATION.
     Route: 054

REACTIONS (2)
  - Maternal exposure during pregnancy [Unknown]
  - Amniotic fluid volume decreased [Unknown]
